FAERS Safety Report 9154774 (Version 1)
Quarter: 2013Q1

REPORT INFORMATION
  Report Type: Spontaneous
  Country: US (occurrence: None)
  Receive Date: 20130305
  Receipt Date: 20130305
  Transmission Date: 20140127
  Serious: No
  Sender: FDA-Public Use
  Company Number: None

PATIENT
  Sex: Male

DRUGS (2)
  1. PRED FORTE [Suspect]
     Indication: OPHTHALMIC HERPES SIMPLEX
     Dosage: 1GTT QD TOPICAL.
  2. PRED FORTE [Suspect]
     Indication: CORNEAL NEOVASCULARISATION
     Dosage: 1GTT QD TOPICAL.

REACTIONS (3)
  - Product substitution issue [None]
  - Corneal neovascularisation [None]
  - Corneal oedema [None]
